FAERS Safety Report 9856091 (Version 4)
Quarter: 2014Q2

REPORT INFORMATION
  Report Type: Spontaneous
  Country: GB (occurrence: GB)
  Receive Date: 20140130
  Receipt Date: 20140512
  Transmission Date: 20141212
  Serious: Yes (Hospitalization, Other)
  Sender: FDA-Public Use
  Company Number: PHFR2013GB006329

PATIENT
  Sex: Male

DRUGS (4)
  1. CLOZARIL [Suspect]
     Indication: SCHIZOPHRENIA
     Dosage: UNK
     Route: 048
     Dates: start: 20130624
  2. CLOZARIL [Suspect]
     Indication: ABNORMAL BEHAVIOUR
     Dosage: 450 MG, DAILY
     Route: 048
     Dates: start: 201308
  3. SODIUM VALPROATE [Concomitant]
     Indication: MOOD SWINGS
     Dosage: 800 MG, DAILY
     Route: 048
     Dates: start: 20131218
  4. DIAZEPAM [Concomitant]
     Indication: AGITATION
     Dosage: 30 MG, DAILY
     Route: 048
     Dates: start: 201401

REACTIONS (4)
  - Lower respiratory tract infection [Recovered/Resolved]
  - Urinary tract infection [Recovering/Resolving]
  - Fall [Recovering/Resolving]
  - Drooling [Recovering/Resolving]
